FAERS Safety Report 6320029-6 (Version None)
Quarter: 2009Q3

REPORT INFORMATION
  Report Type: 
  Country: None (occurrence: None)
  Receive Date: 20090822
  Receipt Date: 20081015
  Transmission Date: 20100115
  Serious: No
  Sender: FDA-Public Use
  Company Number: US-ABBOTT-08P-163-0482061-00

PATIENT
  Sex: Male

DRUGS (3)
  1. NIASPAN [Suspect]
     Indication: HIGH DENSITY LIPOPROTEIN DECREASED
     Route: 048
     Dates: start: 20080915
  2. ASPIRIN [Concomitant]
     Indication: DRUG USE FOR UNKNOWN INDICATION
     Route: 048
  3. MOPADAY [Concomitant]
     Indication: DRUG USE FOR UNKNOWN INDICATION
     Dosage: 15/85 MG, DAILY
     Route: 048

REACTIONS (4)
  - BLOOD GLUCOSE INCREASED [None]
  - ERYTHEMA [None]
  - FLUSHING [None]
  - PARAESTHESIA [None]
